FAERS Safety Report 13931452 (Version 4)
Quarter: 2017Q4

REPORT INFORMATION
  Report Type: Report from Study
  Country: CH (occurrence: CH)
  Receive Date: 20170903
  Receipt Date: 20171124
  Transmission Date: 20180320
  Serious: Yes (Hospitalization)
  Sender: FDA-Public Use
  Company Number: PHHY2017CH127282

PATIENT
  Age: 79 Year
  Sex: Female
  Weight: 81 kg

DRUGS (2)
  1. ENTRESTO [Suspect]
     Active Substance: SACUBITRIL\VALSARTAN
     Indication: CARDIAC FAILURE
     Dosage: 50 MG, BID
     Route: 065
     Dates: start: 20170524, end: 20170606
  2. ENTRESTO [Suspect]
     Active Substance: SACUBITRIL\VALSARTAN
     Dosage: 200 MG, BID
     Route: 065
     Dates: end: 201707

REACTIONS (4)
  - Vomiting [Not Recovered/Not Resolved]
  - Ovarian cancer stage IV [Unknown]
  - Ascites [Unknown]
  - Nausea [Unknown]

NARRATIVE: CASE EVENT DATE: 20170524
